FAERS Safety Report 20594810 (Version 1)
Quarter: 2022Q1

REPORT INFORMATION
  Report Type: Spontaneous
  Country: US (occurrence: None)
  Receive Date: 20220314
  Receipt Date: 20220314
  Transmission Date: 20220423
  Serious: Yes (Death)
  Sender: FDA-Public Use
  Company Number: None

PATIENT
  Sex: Female

DRUGS (1)
  1. BOTOX [Suspect]
     Active Substance: ONABOTULINUMTOXINA
     Indication: Migraine
     Dosage: OTHER FREQUENCY : EVERY 12 WEEKS;?INJ.ECT  EL5 UNITSIN THEMUSCLE EVERY 12 WEEKS.TO HE.AD ANDNECK AR.
     Route: 030
     Dates: start: 20210518

REACTIONS (1)
  - Death [None]
